FAERS Safety Report 16826851 (Version 1)
Quarter: 2019Q3

REPORT INFORMATION
  Report Type: Spontaneous
  Country: CN (occurrence: HK)
  Receive Date: 20190919
  Receipt Date: 20190919
  Transmission Date: 20191005
  Serious: Yes (Death, Life-Threatening)
  Sender: FDA-Public Use
  Company Number: CN-ROCHE-2412329

PATIENT
  Age: 57 Year
  Sex: Male

DRUGS (12)
  1. CARBOPLATIN. [Concomitant]
     Active Substance: CARBOPLATIN
  2. ATEZOLIZUMAB. [Suspect]
     Active Substance: ATEZOLIZUMAB
     Indication: NON-SMALL CELL LUNG CANCER METASTATIC
     Route: 041
     Dates: start: 201802
  3. BEVACIZUMAB. [Concomitant]
     Active Substance: BEVACIZUMAB
     Route: 065
  4. PACLITAXEL. [Concomitant]
     Active Substance: PACLITAXEL
  5. METHYLPREDNISOLONE. [Concomitant]
     Active Substance: METHYLPREDNISOLONE
  6. LEVOCARNITINE. [Concomitant]
     Active Substance: LEVOCARNITINE
  7. ISOSORBIDE DINITRATE. [Concomitant]
     Active Substance: ISOSORBIDE DINITRATE
  8. PEMETREXED. [Concomitant]
     Active Substance: PEMETREXED
  9. DIGOXIN. [Concomitant]
     Active Substance: DIGOXIN
  10. NEDAPLATIN [Concomitant]
     Active Substance: NEDAPLATIN
  11. FUROSEMIDE. [Concomitant]
     Active Substance: FUROSEMIDE
  12. AMIODARONE [Concomitant]
     Active Substance: AMIODARONE

REACTIONS (4)
  - Pneumonitis [Recovered/Resolved]
  - Multiple organ dysfunction syndrome [Fatal]
  - Cardiac dysfunction [Not Recovered/Not Resolved]
  - Thrombocytopenia [Not Recovered/Not Resolved]
